FAERS Safety Report 6106181-6 (Version None)
Quarter: 2009Q1

REPORT INFORMATION
  Report Type: 
  Country: None (occurrence: None)
  Receive Date: 20090306
  Receipt Date: 20090303
  Transmission Date: 20090719
  Serious: Yes (Death, Other)
  Sender: FDA-Public Use
  Company Number: US-CELGENEUS-163-21880-09020947

PATIENT
  Sex: Male

DRUGS (2)
  1. REVLIMID [Suspect]
     Indication: MULTIPLE MYELOMA
     Route: 048
     Dates: start: 20081107, end: 20090101
  2. REVLIMID [Suspect]
     Dosage: 15-25 MG
     Route: 048
     Dates: start: 20071106, end: 20081001

REACTIONS (4)
  - BLOOD COUNT ABNORMAL [None]
  - DEATH [None]
  - HEPATIC FUNCTION ABNORMAL [None]
  - MULTIPLE MYELOMA [None]
